FAERS Safety Report 16250597 (Version 1)
Quarter: 2019Q2

REPORT INFORMATION
  Report Type: Spontaneous
  Country: US (occurrence: US)
  Receive Date: 20190429
  Receipt Date: 20190429
  Transmission Date: 20190711
  Serious: Yes (Hospitalization)
  Sender: FDA-Public Use
  Company Number: US-MYLANLABS-2019M1039525

PATIENT
  Age: 41 Year
  Sex: Female

DRUGS (1)
  1. MITOMYCIN. [Suspect]
     Active Substance: MITOMYCIN
     Indication: COLON CANCER METASTATIC
     Route: 033
     Dates: start: 201710

REACTIONS (5)
  - Skin discolouration [Recovered/Resolved]
  - Skin induration [Recovered/Resolved]
  - Swelling [Recovered/Resolved]
  - Pain [Recovered/Resolved]
  - Eschar [Recovered/Resolved]
